FAERS Safety Report 6270283-4 (Version None)
Quarter: 2009Q3

REPORT INFORMATION
  Report Type: 
  Country: None (occurrence: None)
  Receive Date: 20090716
  Receipt Date: 20090708
  Transmission Date: 20100115
  Serious: Yes (Hospitalization)
  Sender: FDA-Public Use
  Company Number: US-ELI_LILLY_AND_COMPANY-US200907002937

PATIENT
  Sex: Male
  Weight: 92.971 kg

DRUGS (5)
  1. BYETTA [Suspect]
     Indication: TYPE 2 DIABETES MELLITUS
     Dosage: 5 UG, 2/D
     Route: 058
     Dates: start: 20051201, end: 20060101
  2. BYETTA [Suspect]
     Dosage: 10 UG, 2/D
     Route: 058
     Dates: start: 20060101, end: 20090301
  3. BYETTA [Suspect]
     Dosage: 10 UG, 2/D
     Dates: start: 20090501
  4. GLYBURIDE [Concomitant]
     Indication: TYPE 2 DIABETES MELLITUS
     Dosage: 10 MG, 2/D
  5. XANAX [Concomitant]
     Indication: NERVOUSNESS
     Dosage: 1 MG, 2/D

REACTIONS (8)
  - BLOOD GLUCOSE INCREASED [None]
  - DRUG ABUSE [None]
  - DRUG DOSE OMISSION [None]
  - EXPIRED DRUG ADMINISTERED [None]
  - INTERVERTEBRAL DISC PROTRUSION [None]
  - MALAISE [None]
  - NAUSEA [None]
  - WEIGHT DECREASED [None]
